FAERS Safety Report 6011536-4 (Version None)
Quarter: 2008Q4

REPORT INFORMATION
  Report Type: 
  Country: None (occurrence: None)
  Receive Date: 20081218
  Receipt Date: 20080905
  Transmission Date: 20090506
  Serious: No
  Sender: FDA-Public Use
  Company Number: US-ASTRAZENECA-2008UW18405

PATIENT
  Age: 43 Year
  Sex: Female
  Weight: 116 kg

DRUGS (5)
  1. CRESTOR [Suspect]
     Indication: HYPERCHOLESTEROLAEMIA
     Route: 048
     Dates: start: 20080101, end: 20080730
  2. CRESTOR [Suspect]
     Route: 048
     Dates: start: 20080731
  3. TOPIRAMATE [Concomitant]
     Indication: MIGRAINE
     Route: 048
     Dates: start: 20020101
  4. EFFEXOR [Concomitant]
     Indication: FATIGUE
     Route: 048
     Dates: start: 20070101
  5. ZOMIG [Concomitant]
     Indication: MIGRAINE
     Dosage: AS NEEDED
     Route: 048
     Dates: start: 19980101

REACTIONS (3)
  - ARTHRALGIA [None]
  - MYALGIA [None]
  - WEIGHT INCREASED [None]
